FAERS Safety Report 5662982-X (Version None)
Quarter: 2008Q1

REPORT INFORMATION
  Report Type: 
  Country: None (occurrence: None)
  Receive Date: 20080313
  Receipt Date: 20080303
  Transmission Date: 20080703
  Serious: Yes (Death, Life-Threatening, Hospitalization, Other)
  Sender: FDA-Public Use
  Company Number: GB-JNJFOC-20070405398

PATIENT
  Sex: Male
  Weight: 70 kg

DRUGS (6)
  1. REMICADE [Suspect]
     Route: 042
  2. REMICADE [Suspect]
     Indication: RHEUMATOID ARTHRITIS
     Route: 042
  3. METHOTREXATE [Concomitant]
  4. PREDNISOLONE [Concomitant]
  5. FOLIC ACID [Concomitant]
  6. INDOCIN [Concomitant]

REACTIONS (2)
  - AORTIC ANEURYSM RUPTURE [None]
  - BRONCHOPNEUMONIA [None]
